FAERS Safety Report 17569767 (Version 1)
Quarter: 2020Q1

REPORT INFORMATION
  Report Type: Spontaneous
  Country: US (occurrence: US)
  Receive Date: 20200316
  Receipt Date: 20200316
  Transmission Date: 20200409
  Serious: Yes (Other)
  Sender: FDA-Public Use
  Company Number: None

PATIENT
  Age: 11 Year
  Sex: Male

DRUGS (1)
  1. DIAZEPAM 5MG [Suspect]
     Active Substance: DIAZEPAM
     Indication: CYSTIC FIBROSIS
     Route: 048
     Dates: start: 20181108, end: 20181112

REACTIONS (1)
  - Drug ineffective [None]

NARRATIVE: CASE EVENT DATE: 201811
